FAERS Safety Report 18650024 (Version 1)
Quarter: 2020Q4

REPORT INFORMATION
  Report Type: Spontaneous
  Country: DE (occurrence: DE)
  Receive Date: 20201222
  Receipt Date: 20201222
  Transmission Date: 20210114
  Serious: Yes (Other)
  Sender: FDA-Public Use
  Company Number: NVSC2020DE220424

PATIENT
  Sex: Female

DRUGS (4)
  1. EYLEA [Suspect]
     Active Substance: AFLIBERCEPT
     Indication: NEOVASCULAR AGE-RELATED MACULAR DEGENERATION
     Dosage: UNK
     Route: 065
  2. EYLEA [Suspect]
     Active Substance: AFLIBERCEPT
     Dosage: UNK
     Route: 031
     Dates: start: 20200611
  3. BEOVU [Suspect]
     Active Substance: BROLUCIZUMAB-DBLL
     Dosage: UNK
     Route: 031
     Dates: start: 20200514, end: 20200531
  4. BEOVU [Suspect]
     Active Substance: BROLUCIZUMAB-DBLL
     Indication: NEOVASCULAR AGE-RELATED MACULAR DEGENERATION
     Dosage: UNK
     Route: 031
     Dates: start: 20200416

REACTIONS (10)
  - Choroidal neovascularisation [Unknown]
  - Anterior chamber cell [Recovering/Resolving]
  - Retinal vascular occlusion [Unknown]
  - Non-infectious endophthalmitis [Recovering/Resolving]
  - Eye inflammation [Recovering/Resolving]
  - Ocular hyperaemia [Recovering/Resolving]
  - Retinal vasculitis [Unknown]
  - Blindness transient [Recovering/Resolving]
  - Vitreous floaters [Recovering/Resolving]
  - Visual impairment [Recovering/Resolving]

NARRATIVE: CASE EVENT DATE: 20200531
